FAERS Safety Report 6665689-5 (Version None)
Quarter: 2010Q2

REPORT INFORMATION
  Report Type: 
  Country: None (occurrence: None)
  Receive Date: 20100402
  Receipt Date: 20100330
  Transmission Date: 20101027
  Serious: Yes (Hospitalization)
  Sender: FDA-Public Use
  Company Number: US-ELI_LILLY_AND_COMPANY-US201003008614

PATIENT
  Sex: Female
  Weight: 84.354 kg

DRUGS (15)
  1. BYETTA [Suspect]
     Dosage: 5 UG, 2/D
  2. METFORMIN (GLUCOPHAGE) [Concomitant]
     Indication: TYPE 2 DIABETES MELLITUS
     Dosage: 1000 MG, 2/D
  3. GLIPIZIDE [Concomitant]
     Indication: TYPE 2 DIABETES MELLITUS
     Dosage: 10 MG, DAILY (1/D)
  4. ASPIRIN [Concomitant]
     Dosage: UNK, DAILY (1/D)
  5. TEMAZEPAM [Concomitant]
     Indication: SLEEP DISORDER
     Dosage: 15 MG, EACH EVENING
  6. KLOR-CON M [Concomitant]
     Dosage: 10 MG, DAILY (1/D)
  7. AMLODIPINE BESYLATE AND BENAZEPRIL HCL [Concomitant]
  8. TRICOR [Concomitant]
     Indication: BLOOD CHOLESTEROL
     Dosage: 145 MG, DAILY (1/D)
  9. SIMVASTATIN [Concomitant]
     Dosage: 20 MG, DAILY (1/D)
  10. FUROSEMIDE [Concomitant]
     Dosage: 40 MG, DAILY (1/D)
  11. FERROUS SULFATE TAB [Concomitant]
     Dosage: 325 MG, 2/D
  12. FLUTICASONE PROPIONATE [Concomitant]
     Dosage: 50 MG, UNK
  13. ADVAIR DISKUS 100/50 [Concomitant]
     Dosage: 250 MG, 2/D
  14. SPIRIVA [Concomitant]
     Dosage: 18 UG, DAILY (1/D)
  15. VITAMIN C [Concomitant]
     Dosage: 500 MG, 2/D

REACTIONS (8)
  - BLOOD GLUCOSE INCREASED [None]
  - BRONCHITIS [None]
  - DYSPNOEA [None]
  - EMPHYSEMA [None]
  - NEUROPATHY PERIPHERAL [None]
  - NODULE [None]
  - OFF LABEL USE [None]
  - PAIN IN EXTREMITY [None]
